FAERS Safety Report 16187227 (Version 1)
Quarter: 2019Q2

REPORT INFORMATION
  Report Type: Report from Study
  Country: None (occurrence: US)
  Receive Date: 20190411
  Receipt Date: 20190411
  Transmission Date: 20190711
  Serious: Yes (Hospitalization)
  Sender: FDA-Public Use
  Company Number: US-ABBVIE-19K-163-2734929-00

PATIENT
  Sex: Female

DRUGS (2)
  1. HUMIRA [Suspect]
     Active Substance: ADALIMUMAB
     Indication: HIDRADENITIS
     Dosage: HUMIRA CF PEN
     Route: 058
     Dates: start: 201902
  2. HUMIRA [Suspect]
     Active Substance: ADALIMUMAB
     Indication: HIDRADENITIS
     Route: 058
     Dates: end: 201902

REACTIONS (9)
  - Joint swelling [Unknown]
  - Tremor [Unknown]
  - Acute respiratory failure [Unknown]
  - Urticaria [Unknown]
  - Muscular weakness [Unknown]
  - Feeling abnormal [Unknown]
  - Pleural effusion [Unknown]
  - Joint instability [Unknown]
  - Swelling [Unknown]

NARRATIVE: CASE EVENT DATE: 2019
